FAERS Safety Report 14681584 (Version 1)
Quarter: 2018Q1

REPORT INFORMATION
  Report Type: Spontaneous
  Country: US (occurrence: US)
  Receive Date: 20180326
  Receipt Date: 20180326
  Transmission Date: 20180509
  Serious: No
  Sender: FDA-Public Use
  Company Number: US-BAYER-2018-057761

PATIENT
  Age: 55 Year
  Sex: Male

DRUGS (3)
  1. EOVIST [Suspect]
     Active Substance: GADOXETATE DISODIUM
     Indication: IMAGING PROCEDURE
     Dosage: 10 ML, ONCE
     Route: 042
     Dates: start: 201705, end: 201705
  2. EOVIST [Suspect]
     Active Substance: GADOXETATE DISODIUM
     Indication: IMAGING PROCEDURE
     Dosage: 10 ML, ONCE
     Route: 042
     Dates: start: 201708, end: 201708
  3. EOVIST [Suspect]
     Active Substance: GADOXETATE DISODIUM
     Indication: IMAGING PROCEDURE
     Dosage: 6.5 ML, ONCE
     Route: 042
     Dates: start: 201803, end: 201803

REACTIONS (2)
  - Incorrect dose administered [None]
  - Incorrect dose administered [None]

NARRATIVE: CASE EVENT DATE: 201705
